FAERS Safety Report 25766022 (Version 1)
Quarter: 2025Q3

REPORT INFORMATION
  Report Type: Spontaneous
  Country: US (occurrence: US)
  Receive Date: 20250905
  Receipt Date: 20250905
  Transmission Date: 20251021
  Serious: Yes (Life-Threatening, Hospitalization)
  Sender: BAYER HEALTHCARE LLC
  Company Number: US-MLMSERVICE-20250820-PI620564-00075-1

PATIENT
  Age: 51 Year
  Sex: Male

DRUGS (4)
  1. CALCIUM CARBONATE [Suspect]
     Active Substance: CALCIUM CARBONATE
     Indication: Dyspepsia
     Route: 048
  2. CALCIUM CARBONATE [Suspect]
     Active Substance: CALCIUM CARBONATE
     Indication: Gastrooesophageal reflux disease
  3. LISINOPRIL AND HYDROCHLOROTHIAZIDE [Suspect]
     Active Substance: HYDROCHLOROTHIAZIDE\LISINOPRIL
     Indication: Hypertension
     Dosage: LISINOPRIL-HYDROCHLOROTHIAZIDE (20 MG-12.5 MG TABLET) ORALLY DAILY
     Route: 048
  4. METFORMIN [Concomitant]
     Active Substance: METFORMIN HYDROCHLORIDE
     Indication: Type 2 diabetes mellitus
     Route: 048

REACTIONS (10)
  - Milk-alkali syndrome [Recovered/Resolved]
  - Hypokalaemia [Recovered/Resolved]
  - Hypovolaemia [Recovered/Resolved]
  - Hyponatraemia [Recovered/Resolved]
  - Intentional product misuse [Recovered/Resolved]
  - Hypercalcaemia [None]
  - Nausea [None]
  - Vomiting [None]
  - Vertigo [None]
  - Headache [None]
